FAERS Safety Report 9361020 (Version 1)
Quarter: 2013Q2

REPORT INFORMATION
  Report Type: Spontaneous
  Country: SE (occurrence: SE)
  Receive Date: 20130621
  Receipt Date: 20130621
  Transmission Date: 20140414
  Serious: Yes (Disabling)
  Sender: FDA-Public Use
  Company Number: SE-PFIZER INC-2013181878

PATIENT
  Age: 65 Year
  Sex: Male

DRUGS (2)
  1. FOLACIN [Suspect]
     Dosage: 5 MG, UNK
     Dates: end: 2012
  2. METHOTREXATE SODIUM [Suspect]
     Dosage: 2.5 MG, 7 TABLETS A WEEK
     Dates: end: 2012

REACTIONS (2)
  - Hepatotoxicity [Not Recovered/Not Resolved]
  - Frontotemporal dementia [Not Recovered/Not Resolved]
